FAERS Safety Report 24940030 (Version 1)
Quarter: 2025Q1

REPORT INFORMATION
  Report Type: Spontaneous
  Country: CH (occurrence: CH)
  Receive Date: 20250207
  Receipt Date: 20250207
  Transmission Date: 20250409
  Serious: Yes (Hospitalization)
  Sender: Sintetica
  Company Number: None

PATIENT
  Age: 79 Year
  Sex: Female
  Weight: 77 kg

DRUGS (3)
  1. LIDOCAINE HYDROCHLORIDE [Suspect]
     Active Substance: LIDOCAINE HYDROCHLORIDE
     Indication: Antibiotic prophylaxis
     Dates: start: 20241118, end: 20241118
  2. CEFUROXIME [Suspect]
     Active Substance: CEFUROXIME
     Indication: Antibiotic prophylaxis
     Dates: start: 20241118, end: 20241118
  3. AMIODARONE [Suspect]
     Active Substance: AMIODARONE
     Indication: Antibiotic prophylaxis
     Dates: start: 20241118, end: 20241118

REACTIONS (1)
  - Thrombocytopenia [Recovered/Resolved]

NARRATIVE: CASE EVENT DATE: 20241119
